FAERS Safety Report 16312763 (Version 1)
Quarter: 2019Q2

REPORT INFORMATION
  Report Type: Spontaneous
  Country: FR (occurrence: FR)
  Receive Date: 20190515
  Receipt Date: 20190515
  Transmission Date: 20190711
  Serious: Yes (Hospitalization, Other)
  Sender: FDA-Public Use
  Company Number: FR-AUROBINDO-AUR-APL-2019-027144

PATIENT

DRUGS (3)
  1. URBANYL [Suspect]
     Active Substance: CLOBAZAM
     Indication: PARTIAL SEIZURES
     Dosage: UNK UNK, UNK
     Route: 048
  2. DEPAKINE [Suspect]
     Active Substance: VALPROATE SODIUM
     Indication: PARTIAL SEIZURES
     Dosage: UNK UNK, UNK
     Route: 065
     Dates: start: 20040822
  3. LAMOTRIGINE. [Suspect]
     Active Substance: LAMOTRIGINE
     Indication: PARTIAL SEIZURES
     Dosage: UNK UNK, UNK
     Route: 065

REACTIONS (3)
  - Epilepsy [Unknown]
  - Abortion induced [Unknown]
  - Exposure during pregnancy [Unknown]
